FAERS Safety Report 8606448-3 (Version None)
Quarter: 2012Q3

REPORT INFORMATION
  Report Type: 
  Country: None (occurrence: None)
  Receive Date: 20120820
  Receipt Date: 20120810
  Transmission Date: 20120928
  Serious: Yes (Other)
  Sender: FDA-Public Use
  Company Number: AT-CELGENEUS-009-21880-12062598

PATIENT
  Age: 78 Year
  Sex: Male
  Weight: 79.6 kg

DRUGS (6)
  1. REVLIMID [Suspect]
     Route: 048
     Dates: start: 20120606, end: 20120719
  2. FERRETAB [Concomitant]
     Dosage: 4 CAPSULE
     Route: 065
     Dates: start: 20120507, end: 20120726
  3. REVLIMID [Suspect]
     Route: 048
     Dates: start: 20120521, end: 20120528
  4. ASPIRIN [Concomitant]
     Route: 065
     Dates: start: 20120101
  5. BISOSTAD [Concomitant]
     Route: 065
     Dates: start: 20120101
  6. REVLIMID [Suspect]
     Route: 048
     Dates: start: 20120727

REACTIONS (2)
  - LEUKOCYTOCLASTIC VASCULITIS [None]
  - ERYTHEMA [None]
